FAERS Safety Report 23853659 (Version 1)
Quarter: 2024Q2

REPORT INFORMATION
  Report Type: Spontaneous
  Country: US (occurrence: None)
  Receive Date: 20240513
  Receipt Date: 20240513
  Transmission Date: 20240716
  Serious: Yes (Other)
  Sender: FDA-Public Use
  Company Number: None

PATIENT
  Age: 54 Year
  Sex: Female
  Weight: 54.45 kg

DRUGS (5)
  1. SEMAGLUTIDE [Suspect]
     Active Substance: SEMAGLUTIDE
     Indication: Weight decreased
     Dosage: OTHER QUANTITY : 68 UNITS;?OTHER FREQUENCY : 1 TIME WEEKLY INJE;?
     Route: 058
     Dates: start: 20240202, end: 20240503
  2. LIPITOR [Concomitant]
     Active Substance: ATORVASTATIN CALCIUM
  3. VITAMINS [Concomitant]
     Active Substance: VITAMINS
  4. PEPCID [Concomitant]
     Active Substance: FAMOTIDINE
  5. ASPIRIN [Concomitant]
     Active Substance: ASPIRIN

REACTIONS (2)
  - Pain of skin [None]
  - Influenza like illness [None]

NARRATIVE: CASE EVENT DATE: 20240405
